FAERS Safety Report 9733486 (Version 1)
Quarter: 2013Q4

REPORT INFORMATION
  Report Type: Spontaneous
  Country: DE (occurrence: DE)
  Receive Date: 20131205
  Receipt Date: 20131205
  Transmission Date: 20140711
  Serious: Yes (Hospitalization)
  Sender: FDA-Public Use
  Company Number: DE-TEVA-448167GER

PATIENT
  Sex: Female

DRUGS (1)
  1. DOXY-CT 200 MG [Suspect]
     Indication: ARTHROPOD BITE
     Route: 048
     Dates: start: 2013, end: 201308

REACTIONS (2)
  - Mydriasis [Not Recovered/Not Resolved]
  - Pupils unequal [Not Recovered/Not Resolved]
